FAERS Safety Report 13095150 (Version 1)
Quarter: 2017Q1

REPORT INFORMATION
  Report Type: Other
  Country: US (occurrence: US)
  Receive Date: 20170107
  Receipt Date: 20170107
  Transmission Date: 20170428
  Serious: Yes (Life-Threatening)
  Sender: FDA-Public Use
  Company Number: US-GRANULES INDIA LIMITED-1061704

PATIENT
  Age: 52 Year
  Sex: Female

DRUGS (1)
  1. METFORMIN HYDROCHLORIDE. [Suspect]
     Active Substance: METFORMIN HYDROCHLORIDE
     Indication: PRODUCT USED FOR UNKNOWN INDICATION

REACTIONS (14)
  - Somnolence [Unknown]
  - Lactic acidosis [Unknown]
  - Mental status changes [Unknown]
  - Malaise [Unknown]
  - Vomiting [Unknown]
  - Chest pain [Unknown]
  - Hypotension [Unknown]
  - Acute myocardial infarction [Unknown]
  - Speech disorder [Unknown]
  - Bradycardia [Unknown]
  - Clonus [Unknown]
  - Confusional state [Unknown]
  - Delirium [Unknown]
  - Agitation [Unknown]
